FAERS Safety Report 5425169-1 (Version None)
Quarter: 2007Q3

REPORT INFORMATION
  Report Type: 
  Country: None (occurrence: None)
  Receive Date: 20070824
  Receipt Date: 20070820
  Transmission Date: 20080115
  Serious: Yes (Other)
  Sender: FDA-Public Use
  Company Number: US-GILEAD-2007-0012639

PATIENT
  Age: 29 Year
  Sex: Female

DRUGS (4)
  1. TRUVADA [Suspect]
     Indication: HIV INFECTION
     Route: 048
     Dates: start: 20060911
  2. KALETRA [Concomitant]
     Indication: HIV INFECTION
     Route: 048
     Dates: start: 20070319
  3. REYATAZ [Concomitant]
     Indication: HIV INFECTION
     Dates: start: 20060911, end: 20070318
  4. NORVIR [Concomitant]
     Indication: HIV INFECTION
     Dates: start: 20060911, end: 20070318

REACTIONS (1)
  - RUPTURED ECTOPIC PREGNANCY [None]
